FAERS Safety Report 4808279-9 (Version None)
Quarter: 2005Q4

REPORT INFORMATION
  Report Type: 
  Country: None (occurrence: None)
  Receive Date: 20051021
  Receipt Date: 20051021
  Transmission Date: 20060501
  Serious: Yes (Life-Threatening, Hospitalization)
  Sender: FDA-Public Use
  Company Number: None

PATIENT
  Age: 81 Year
  Sex: Male
  Weight: 118.3888 kg

DRUGS (2)
  1. VALIUM [Suspect]
     Indication: COMPUTERISED TOMOGRAM
     Dosage: 7.5 MG IV ONCE
     Dates: start: 20050711
  2. VALIUM [Suspect]
     Indication: SEDATION
     Dosage: 7.5 MG IV ONCE
     Dates: start: 20050711

REACTIONS (3)
  - INTRACRANIAL PRESSURE INCREASED [None]
  - OXYGEN SATURATION DECREASED [None]
  - RESPIRATORY FAILURE [None]
